FAERS Safety Report 24323128 (Version 3)
Quarter: 2024Q4

REPORT INFORMATION
  Report Type: Spontaneous
  Country: CA (occurrence: CA)
  Receive Date: 20240916
  Receipt Date: 20241107
  Transmission Date: 20250115
  Serious: Yes (Hospitalization, Other)
  Sender: PFIZER
  Company Number: CA-PFIZER INC-202400253894

PATIENT
  Age: 77 Year
  Sex: Female

DRUGS (1)
  1. ABRILADA [Suspect]
     Active Substance: ADALIMUMAB-AFZB
     Indication: Crohn^s disease
     Dosage: W0 160MG, W2 80MG AND THEN 40MG EVERY 2 WEEKS (Q2W)
     Route: 058
     Dates: start: 20240610

REACTIONS (2)
  - Colectomy [Unknown]
  - Off label use [Unknown]

NARRATIVE: CASE EVENT DATE: 20240910
